FAERS Safety Report 9638728 (Version 1)
Quarter: 2013Q4

REPORT INFORMATION
  Report Type: Spontaneous
  Country: US (occurrence: US)
  Receive Date: 20131022
  Receipt Date: 20131022
  Transmission Date: 20140711
  Serious: No
  Sender: FDA-Public Use
  Company Number: US-BRISTOL-MYERS SQUIBB COMPANY-19229236

PATIENT
  Age: 78 Year
  Sex: 0

DRUGS (1)
  1. ELIQUIS [Suspect]
     Dosage: THERAPY DURATION-2-2.5 WEEKS

REACTIONS (2)
  - Lethargy [Unknown]
  - Dizziness [Unknown]
